FAERS Safety Report 7003544-1 (Version None)
Quarter: 2010Q3

REPORT INFORMATION
  Report Type: 
  Country: None (occurrence: None)
  Receive Date: 20100920
  Receipt Date: 20100910
  Transmission Date: 20110219
  Serious: Yes (Hospitalization, Disabling)
  Sender: FDA-Public Use
  Company Number: CO-AMGEN-QUU439046

PATIENT
  Sex: Female

DRUGS (5)
  1. ENBREL [Suspect]
     Indication: RHEUMATOID ARTHRITIS
     Dates: start: 20091001, end: 20091201
  2. ENBREL [Suspect]
     Dates: start: 20100701, end: 20100901
  3. OLMETEC [Suspect]
     Indication: HYPERTENSION
     Route: 042
     Dates: start: 20060101
  4. METHOTREXATE [Suspect]
     Indication: ARTHRITIS
     Dosage: UNKNOWN
     Route: 048
     Dates: start: 20000101
  5. PREDNISOLONE [Concomitant]
     Dosage: UNKNOWN
     Dates: start: 20000101, end: 20091001

REACTIONS (9)
  - ARTHRITIS [None]
  - BLOOD PRESSURE INCREASED [None]
  - DRUG INEFFECTIVE [None]
  - GAIT DISTURBANCE [None]
  - GASTRITIS [None]
  - HEADACHE [None]
  - TRANSAMINASES ABNORMAL [None]
  - URINARY TRACT INFECTION [None]
  - VARICOPHLEBITIS [None]
